FAERS Safety Report 10594910 (Version 2)
Quarter: 2021Q4

REPORT INFORMATION
  Report Type: Spontaneous
  Country: IN (occurrence: IN)
  Receive Date: 20141120
  Receipt Date: 20211018
  Transmission Date: 20220304
  Serious: Yes (Life-Threatening, Hospitalization, Other)
  Sender: FDA-Public Use
  Company Number: IN-CIPLA LTD.-2014IN02025

PATIENT

DRUGS (1)
  1. AMLODIPINE [Suspect]
     Active Substance: AMLODIPINE BESYLATE
     Dosage: 250 MILLIGRAM, TOTAL (50 TABLETS OF 5MG)
     Route: 048

REACTIONS (12)
  - Intentional overdose [Unknown]
  - Acute respiratory distress syndrome [Recovering/Resolving]
  - Tachypnoea [Recovering/Resolving]
  - Acute kidney injury [Recovered/Resolved]
  - Shock [Recovering/Resolving]
  - Suicide attempt [Unknown]
  - Metabolic acidosis [Recovering/Resolving]
  - Hyperkalaemia [Recovering/Resolving]
  - Non-cardiogenic pulmonary oedema [Unknown]
  - Toxicity to various agents [Unknown]
  - Hypotension [Recovered/Resolved]
  - Sinus tachycardia [Recovering/Resolving]
